FAERS Safety Report 7701435-1 (Version None)
Quarter: 2011Q3

REPORT INFORMATION
  Report Type: 
  Country: None (occurrence: None)
  Receive Date: 20110822
  Receipt Date: 20110812
  Transmission Date: 20111222
  Serious: Yes (Hospitalization)
  Sender: FDA-Public Use
  Company Number: BR-ASTRAZENECA-2011SE49120

PATIENT
  Age: 84 Year
  Sex: Male
  Weight: 90 kg

DRUGS (3)
  1. RASILEZ [Concomitant]
     Indication: HYPERTENSION
     Route: 048
     Dates: start: 20090101
  2. ATACAND HCT [Suspect]
     Indication: HYPERTENSION
     Dosage: 16/12.5 MG ONCE DAILY
     Route: 048
     Dates: start: 20090101
  3. GALVUS MET [Concomitant]
     Indication: DIABETES MELLITUS
     Dosage: TWO TIMES A DAY
     Route: 048

REACTIONS (7)
  - TUMOUR EXCISION [None]
  - BLOOD PRESSURE FLUCTUATION [None]
  - ARRHYTHMIA [None]
  - WEIGHT INCREASED [None]
  - DRUG INEFFECTIVE [None]
  - BLOOD PRESSURE INCREASED [None]
  - GASTROINTESTINAL NEOPLASM [None]
